FAERS Safety Report 9311653 (Version 2)
Quarter: 2013Q3

REPORT INFORMATION
  Report Type: Spontaneous
  Country: US (occurrence: US)
  Receive Date: 20130528
  Receipt Date: 20130711
  Transmission Date: 20140515
  Serious: No
  Sender: FDA-Public Use
  Company Number: US-PFIZER INC-2013159244

PATIENT
  Sex: Female

DRUGS (1)
  1. ADVIL [Suspect]
     Dosage: UNK

REACTIONS (4)
  - Poor quality drug administered [Unknown]
  - Drug effect delayed [Unknown]
  - Feeling abnormal [Unknown]
  - Product odour abnormal [Unknown]
